FAERS Safety Report 13158375 (Version 1)
Quarter: 2017Q1

REPORT INFORMATION
  Report Type: Spontaneous
  Country: NL (occurrence: NL)
  Receive Date: 20170127
  Receipt Date: 20170127
  Transmission Date: 20170428
  Serious: Yes (Other)
  Sender: FDA-Public Use
  Company Number: NL-AMGEN-NLDSP2017011550

PATIENT
  Age: 65 Year
  Sex: Male
  Weight: 63 kg

DRUGS (1)
  1. REPATHA [Suspect]
     Active Substance: EVOLOCUMAB
     Indication: HYPERCHOLESTEROLAEMIA
     Dosage: 140 MG/ML (1 ML), TWICE IN A MONTH
     Route: 058
     Dates: start: 20161228, end: 20170117

REACTIONS (12)
  - Back pain [Not Recovered/Not Resolved]
  - Dyspepsia [Unknown]
  - Restlessness [Not Recovered/Not Resolved]
  - Tinnitus [Unknown]
  - Rhinorrhoea [Unknown]
  - Fatigue [Not Recovered/Not Resolved]
  - Erythema [Recovering/Resolving]
  - Sneezing [Unknown]
  - Dysuria [Recovering/Resolving]
  - Arrhythmia [Not Recovered/Not Resolved]
  - Poor quality sleep [Not Recovered/Not Resolved]
  - Abnormal dreams [Unknown]

NARRATIVE: CASE EVENT DATE: 20170103
